FAERS Safety Report 6612646-0 (Version None)
Quarter: 2010Q1

REPORT INFORMATION
  Report Type: 
  Country: None (occurrence: None)
  Receive Date: 20100303
  Receipt Date: 20100301
  Transmission Date: 20100710
  Serious: Yes (Hospitalization, Disabling)
  Sender: FDA-Public Use
  Company Number: JP-B.I. PHARMACEUTICALS,INC./RIDGEFIELD-2006-BP-14490NB

PATIENT
  Sex: Male
  Weight: 49 kg

DRUGS (3)
  1. MICARDIS [Suspect]
     Indication: HYPERTENSION
     Dosage: 80 MG
     Route: 048
     Dates: start: 20060916
  2. MICARDIS [Suspect]
     Dosage: 40 MG
     Route: 048
     Dates: start: 20060909
  3. NORVASC [Concomitant]
     Dosage: 5 MG
     Route: 048

REACTIONS (1)
  - CEREBRAL INFARCTION [None]
